FAERS Safety Report 10503948 (Version 2)
Quarter: 2014Q4

REPORT INFORMATION
  Report Type: Spontaneous
  Country: US (occurrence: None)
  Receive Date: 20141006
  Receipt Date: 20141028
  Transmission Date: 20150528
  Serious: Yes (Hospitalization)
  Sender: FDA-Public Use
  Company Number: 2014-US-012486

PATIENT
  Age: 74 Year
  Sex: Male

DRUGS (1)
  1. XYREM [Suspect]
     Active Substance: SODIUM OXYBATE
     Indication: NARCOLEPSY
     Route: 048
     Dates: start: 200308, end: 2003

REACTIONS (5)
  - Diabetes mellitus [None]
  - Blood cholesterol increased [None]
  - Cellulitis [None]
  - Sleep apnoea syndrome [None]
  - Hypertension [None]

NARRATIVE: CASE EVENT DATE: 201407
